FAERS Safety Report 16281480 (Version 4)
Quarter: 2022Q4

REPORT INFORMATION
  Report Type: Spontaneous
  Country: US (occurrence: US)
  Receive Date: 20190507
  Receipt Date: 20221114
  Transmission Date: 20230113
  Serious: Yes (Hospitalization, Other)
  Sender: FDA-Public Use
  Company Number: US-PFIZER INC-2019188409

PATIENT
  Age: 61 Year
  Sex: Male
  Weight: 104.31 kg

DRUGS (1)
  1. EUCRISA [Suspect]
     Active Substance: CRISABOROLE
     Indication: Dermatitis atopic
     Dosage: UNK

REACTIONS (2)
  - Osteoarthritis [Not Recovered/Not Resolved]
  - Therapeutic product effect incomplete [Unknown]
